FAERS Safety Report 17484180 (Version 1)
Quarter: 2020Q1

REPORT INFORMATION
  Report Type: Spontaneous
  Country: US (occurrence: US)
  Receive Date: 20200219
  Receipt Date: 20200219
  Transmission Date: 20200409
  Serious: Yes (Hospitalization)
  Sender: FDA-Public Use
  Company Number: None

PATIENT
  Age: 37 Year
  Sex: Female

DRUGS (2)
  1. MYCOPHENOLAT [Concomitant]
     Active Substance: MYCOPHENOLATE MOFETIL
  2. BENLYSTA [Suspect]
     Active Substance: BELIMUMAB

REACTIONS (2)
  - Condition aggravated [None]
  - Discomfort [None]

NARRATIVE: CASE EVENT DATE: 20200217
